FAERS Safety Report 14963604 (Version 1)
Quarter: 2018Q2

REPORT INFORMATION
  Report Type: Spontaneous
  Country: RU (occurrence: RU)
  Receive Date: 20180601
  Receipt Date: 20180601
  Transmission Date: 20180711
  Serious: Yes (Hospitalization, Other)
  Sender: FDA-Public Use
  Company Number: RU-SHIRE-RU201820412

PATIENT

DRUGS (3)
  1. PEGASPARGASE [Suspect]
     Active Substance: PEGASPARGASE
     Dosage: 800 IU, UNK
  2. PEGASPARGASE [Suspect]
     Active Substance: PEGASPARGASE
     Indication: ACUTE LYMPHOCYTIC LEUKAEMIA
     Dosage: 30 MG, UNK
     Route: 042
     Dates: start: 20170626, end: 20170626
  3. PEGASPARGASE [Suspect]
     Active Substance: PEGASPARGASE
     Dosage: 0.8 MG, UNK

REACTIONS (3)
  - Leukopenia [Recovered/Resolved]
  - Hypothermia [Recovered/Resolved]
  - Sepsis [Recovered/Resolved]

NARRATIVE: CASE EVENT DATE: 20170712
